FAERS Safety Report 19185578 (Version 2)
Quarter: 2021Q2

REPORT INFORMATION
  Report Type: Spontaneous
  Country: JP (occurrence: JP)
  Receive Date: 20210427
  Receipt Date: 20210531
  Transmission Date: 20210717
  Serious: Yes (Hospitalization, Other)
  Sender: FDA-Public Use
  Company Number: JP-SA-2021SA132608

PATIENT
  Age: 73 Year
  Sex: Male

DRUGS (1)
  1. OXALIPLATIN. [Suspect]
     Active Substance: OXALIPLATIN
     Indication: COLON CANCER
     Dosage: ELPLAT I.V.INFUSION SOLUTION, INJECTION
     Route: 042

REACTIONS (4)
  - Metastases to liver [Unknown]
  - Drug ineffective [Unknown]
  - Pleural effusion [Unknown]
  - Venoocclusive liver disease [Unknown]
